FAERS Safety Report 12095398 (Version 1)
Quarter: 2016Q1

REPORT INFORMATION
  Report Type: Spontaneous
  Country: GR (occurrence: GR)
  Receive Date: 20160219
  Receipt Date: 20160219
  Transmission Date: 20160526
  Serious: Yes (Other)
  Sender: FDA-Public Use
  Company Number: PHHY2016GR020835

PATIENT
  Sex: Male

DRUGS (1)
  1. FYRONEXE PLUS [Suspect]
     Active Substance: CANDESARTAN CILEXETIL\HYDROCHLOROTHIAZIDE
     Indication: HYPERTENSION
     Route: 065

REACTIONS (3)
  - Gastroenteritis [Recovered/Resolved]
  - Syncope [Recovered/Resolved]
  - Platelet count decreased [Unknown]
